FAERS Safety Report 11806257 (Version 2)
Quarter: 2016Q2

REPORT INFORMATION
  Report Type: Report from Study
  Country: JP (occurrence: JP)
  Receive Date: 20151207
  Receipt Date: 20160601
  Transmission Date: 20160815
  Serious: Yes (Hospitalization)
  Sender: FDA-Public Use
  Company Number: JP-ASTELLAS-2012JP001773

PATIENT
  Age: 15 Year
  Sex: Male
  Weight: 38 kg

DRUGS (43)
  1. PREDNISOLONE. [Suspect]
     Active Substance: PREDNISOLONE
     Indication: LUPUS NEPHRITIS
     Route: 048
  2. PREDNISOLONE. [Suspect]
     Active Substance: PREDNISOLONE
     Dosage: 17MG/DAY, 3MG/DAY, ALTERNATE DAILY INGESTION
     Route: 048
     Dates: start: 20080617, end: 20080630
  3. PREDNISOLONE. [Suspect]
     Active Substance: PREDNISOLONE
     Route: 048
     Dates: start: 20081209, end: 20090202
  4. PREDNISOLONE. [Suspect]
     Active Substance: PREDNISOLONE
     Route: 048
     Dates: start: 20090421, end: 20090601
  5. PREDNISOLONE. [Suspect]
     Active Substance: PREDNISOLONE
     Route: 048
     Dates: start: 20100407, end: 20100427
  6. PREDNISOLONE. [Suspect]
     Active Substance: PREDNISOLONE
     Dosage: 4MG/DAY, 3MG/DAY, ALTERNATE DAILY INGESTION
     Route: 048
     Dates: start: 20111030, end: 20120821
  7. BONALON [Concomitant]
     Active Substance: ALENDRONATE SODIUM
     Indication: PROPHYLAXIS
     Route: 048
     Dates: end: 20130330
  8. TACROLIMUS. [Suspect]
     Active Substance: TACROLIMUS
     Route: 048
     Dates: start: 20071218, end: 20080114
  9. TACROLIMUS. [Suspect]
     Active Substance: TACROLIMUS
     Route: 048
     Dates: start: 20080115, end: 20141108
  10. TACROLIMUS. [Suspect]
     Active Substance: TACROLIMUS
     Route: 048
     Dates: start: 20141109, end: 20150808
  11. PREDNISOLONE. [Suspect]
     Active Substance: PREDNISOLONE
     Dosage: 11MG/DAY, 9MG/DAY, ALTERNATE DAILY INGESTION
     Route: 048
     Dates: start: 20080325, end: 20080421
  12. PREDNISOLONE. [Suspect]
     Active Substance: PREDNISOLONE
     Route: 048
     Dates: start: 20080819, end: 20080915
  13. PREDNISOLONE. [Suspect]
     Active Substance: PREDNISOLONE
     Dosage: 19MG/DAY, 18MG/DAY, ALTERNATE DAILY INGESTION
     Route: 048
     Dates: start: 20080916, end: 20081013
  14. PREDNISOLONE. [Suspect]
     Active Substance: PREDNISOLONE
     Route: 048
     Dates: start: 20090331, end: 20090420
  15. PREDNISOLONE. [Suspect]
     Active Substance: PREDNISOLONE
     Route: 048
     Dates: start: 20091013, end: 20100406
  16. PREDNISOLONE. [Suspect]
     Active Substance: PREDNISOLONE
     Dosage: 18MG/DAY, 2MG/DAY, ALTERNATE DAILY INGESTION
     Route: 048
     Dates: start: 20080701, end: 20080714
  17. PREDNISOLONE. [Suspect]
     Active Substance: PREDNISOLONE
     Dosage: 12MG/DAY, 11MG/DAY, ALTERNATE DAILY INGESTION
     Route: 048
     Dates: start: 20090602, end: 20090720
  18. PREDNISOLONE. [Suspect]
     Active Substance: PREDNISOLONE
     Route: 048
     Dates: start: 20100428, end: 20100529
  19. CELLCEPT [Suspect]
     Active Substance: MYCOPHENOLATE MOFETIL\MYCOPHENOLATE MOFETIL HYDROCHLORIDE
     Indication: LUPUS NEPHRITIS
     Route: 048
     Dates: start: 20150809, end: 20150902
  20. TACROLIMUS. [Suspect]
     Active Substance: TACROLIMUS
     Route: 048
     Dates: start: 20150809, end: 20150902
  21. PREDNISOLONE. [Suspect]
     Active Substance: PREDNISOLONE
     Dosage: 12.5MG/DAY, 10MG/DAY, ALTERNATE DAILY INGESTION
     Route: 048
     Dates: start: 20071113, end: 20080114
  22. PREDNISOLONE. [Suspect]
     Active Substance: PREDNISOLONE
     Dosage: 12.5MG/DAY, 10MG/DAY, ALTERNATE DAILY INGESTION
     Route: 048
     Dates: start: 20080115, end: 20080222
  23. PREDNISOLONE. [Suspect]
     Active Substance: PREDNISOLONE
     Dosage: 13MG/DAY, 7MG/DAY, ALTERNATE DAILY INGESTION
     Route: 048
     Dates: start: 20080422, end: 20080505
  24. PREDNISOLONE. [Suspect]
     Active Substance: PREDNISOLONE
     Route: 048
     Dates: start: 20080729, end: 20080818
  25. PREDNISOLONE. [Suspect]
     Active Substance: PREDNISOLONE
     Route: 048
     Dates: start: 20121223, end: 20130827
  26. TACROLIMUS. [Suspect]
     Active Substance: TACROLIMUS
     Indication: LUPUS NEPHRITIS
     Route: 048
     Dates: start: 20071113, end: 20071217
  27. PREDNISOLONE. [Suspect]
     Active Substance: PREDNISOLONE
     Route: 048
     Dates: start: 20080223, end: 20080324
  28. PREDNISOLONE. [Suspect]
     Active Substance: PREDNISOLONE
     Dosage: 19MG/DAY, 1MG/DAY, ALTERNATE DAILY INGESTION
     Route: 048
     Dates: start: 20080715, end: 20080728
  29. PREDNISOLONE. [Suspect]
     Active Substance: PREDNISOLONE
     Route: 048
     Dates: start: 20081104, end: 20081208
  30. PREDNISOLONE. [Suspect]
     Active Substance: PREDNISOLONE
     Route: 048
     Dates: start: 20090721, end: 20090817
  31. PREDNISOLONE. [Suspect]
     Active Substance: PREDNISOLONE
     Route: 048
     Dates: start: 20090818, end: 20091012
  32. PREDNISOLONE. [Suspect]
     Active Substance: PREDNISOLONE
     Route: 048
     Dates: start: 20100530, end: 2010
  33. PREDNISOLONE. [Suspect]
     Active Substance: PREDNISOLONE
     Route: 048
     Dates: start: 20100724, end: 20101009
  34. PREDNISOLONE. [Suspect]
     Active Substance: PREDNISOLONE
     Route: 048
     Dates: start: 20120822, end: 20121222
  35. TACROLIMUS. [Suspect]
     Active Substance: TACROLIMUS
     Route: 048
     Dates: start: 20150903
  36. PREDNISOLONE. [Suspect]
     Active Substance: PREDNISOLONE
     Route: 048
     Dates: start: 20081014, end: 20081103
  37. PREDNISOLONE. [Suspect]
     Active Substance: PREDNISOLONE
     Route: 048
     Dates: start: 20090224, end: 20090330
  38. PREDNISOLONE. [Suspect]
     Active Substance: PREDNISOLONE
     Dosage: 15MG/DAY, 5MG/DAY, ALTERNATE DAILY INGESTION
     Route: 048
     Dates: start: 20080520, end: 20080602
  39. PREDNISOLONE. [Suspect]
     Active Substance: PREDNISOLONE
     Route: 048
     Dates: start: 20090203, end: 20090223
  40. PREDNISOLONE. [Suspect]
     Active Substance: PREDNISOLONE
     Route: 048
     Dates: start: 20101010, end: 20111029
  41. PREDNISOLONE. [Suspect]
     Active Substance: PREDNISOLONE
     Route: 048
     Dates: start: 20130828, end: 20131026
  42. PREDNISOLONE. [Suspect]
     Active Substance: PREDNISOLONE
     Dosage: 14MG/DAY, 6MG/DAY, ALTERNATE DAILY INGESTION
     Route: 048
     Dates: start: 20080506, end: 20080519
  43. PREDNISOLONE. [Suspect]
     Active Substance: PREDNISOLONE
     Dosage: 16MG/DAY, 4MG/DAY, ALTERNATE DAILY INGESTION
     Route: 048
     Dates: start: 20080603, end: 20080616

REACTIONS (3)
  - Dermatitis allergic [Recovering/Resolving]
  - Osteonecrosis [Recovering/Resolving]
  - Off label use [Unknown]

NARRATIVE: CASE EVENT DATE: 20071113
